FAERS Safety Report 9092734 (Version 1)
Quarter: 2013Q1

REPORT INFORMATION
  Report Type: Spontaneous
  Country: US (occurrence: US)
  Receive Date: 20130201
  Receipt Date: 20130201
  Transmission Date: 20140127
  Serious: Yes (Hospitalization)
  Sender: FDA-Public Use
  Company Number: US-BAYER-2013-012433

PATIENT
  Age: 18 Year
  Sex: Female

DRUGS (8)
  1. YASMIN [Suspect]
  2. SULFAMETHOXAZOLE/TRIMETHOPRIM [Concomitant]
     Dosage: DOUBLE STRENGTH
  3. HYDROXYZINE HCL [Concomitant]
     Dosage: 10 MG, UNK
  4. RITALIN [Concomitant]
     Dosage: 5 MG, 10 MG, 20 MG TABLETS
  5. AMOXICILLIN W/CLAVULANIC ACID [Concomitant]
     Dosage: 875-125 MG
  6. METHYLPREDNISOLONE [Concomitant]
     Dosage: 4 MG, UNK
  7. OXYCODONE/APAP [Concomitant]
     Dosage: 5/325
  8. CEPHALEXIN [Concomitant]
     Dosage: 500 MG, UNK

REACTIONS (1)
  - Deep vein thrombosis [None]
